FAERS Safety Report 5653492-4 (Version None)
Quarter: 2008Q1

REPORT INFORMATION
  Report Type: 
  Country: None (occurrence: None)
  Receive Date: 20080131
  Receipt Date: 20071009
  Transmission Date: 20080703
  Serious: No
  Sender: FDA-Public Use
  Company Number: US200710002579

PATIENT
  Age: 73 Year
  Sex: Female

DRUGS (4)
  1. BYETTA [Suspect]
     Indication: INSULIN-REQUIRING TYPE 2 DIABETES MELLITUS
     Dosage: 5 UG, 2/D, SUBCUTANEOUS
     Route: 058
     Dates: start: 20070916, end: 20071001
  2. LANTUS [Concomitant]
  3. NOVOLOG [Concomitant]
  4. TORSEMIDE (TORSEMIDE) [Concomitant]

REACTIONS (4)
  - DECREASED APPETITE [None]
  - EYE HAEMORRHAGE [None]
  - OEDEMA PERIPHERAL [None]
  - VISUAL ACUITY REDUCED [None]
